FAERS Safety Report 4917868-2 (Version None)
Quarter: 2006Q1

REPORT INFORMATION
  Report Type: 
  Country: None (occurrence: None)
  Receive Date: 20060214
  Receipt Date: 20060203
  Transmission Date: 20060701
  Serious: Yes (Other)
  Sender: FDA-Public Use
  Company Number: 200610520GDS

PATIENT
  Age: 81 Year
  Sex: Female

DRUGS (7)
  1. CIPRO [Suspect]
     Dosage: 1000 MG, TOTAL DAILY
  2. NOVO-CO-TRIMOXAZOLE (CO-TRIMOXAZOLE) [Suspect]
     Dosage: BID
  3. ESTROGENS NOS [Concomitant]
  4. GARAMYCIN OPHTHALMIC [Concomitant]
  5. LEVOTHYROXINE SODIUM [Concomitant]
  6. OXYBUTYN [Concomitant]
  7. PROVERA [Concomitant]

REACTIONS (7)
  - DEHYDRATION [None]
  - DYSPHAGIA [None]
  - EYE INFECTION [None]
  - LIP PAIN [None]
  - NAUSEA [None]
  - STEVENS-JOHNSON SYNDROME [None]
  - VOMITING [None]
